FAERS Safety Report 23137005 (Version 2)
Quarter: 2023Q4

REPORT INFORMATION
  Report Type: Spontaneous
  Country: FR (occurrence: FR)
  Receive Date: 20231102
  Receipt Date: 20231106
  Transmission Date: 20240109
  Serious: Yes (Other)
  Sender: FDA-Public Use
  Company Number: FR-AMGEN-FRASP2023192974

PATIENT
  Age: 46 Year
  Sex: Male

DRUGS (2)
  1. ADALIMUMAB [Suspect]
     Active Substance: ADALIMUMAB\ISOPROPYL ALCOHOL
     Indication: Spondyloarthropathy
     Dosage: 40 UNK, Q2WK (1 INJECTION EVERY 15 DAYS)
     Route: 065
     Dates: start: 202205, end: 202307
  2. ADALIMUMAB [Suspect]
     Active Substance: ADALIMUMAB\ISOPROPYL ALCOHOL
     Dosage: 40 UNK, Q2WK (1 INJECTION EVERY 15 DAYS)
     Route: 065
     Dates: start: 202309

REACTIONS (2)
  - Rotator cuff syndrome [Recovering/Resolving]
  - Impaired healing [Unknown]

NARRATIVE: CASE EVENT DATE: 20230101
